FAERS Safety Report 12119877 (Version 2)
Quarter: 2016Q1

REPORT INFORMATION
  Report Type: Spontaneous
  Country: GR (occurrence: GR)
  Receive Date: 20160226
  Receipt Date: 20160310
  Transmission Date: 20160526
  Serious: Yes (Death, Other)
  Sender: FDA-Public Use
  Company Number: GR-PFIZER INC-2016114109

PATIENT
  Sex: Male

DRUGS (3)
  1. REVATIO [Suspect]
     Active Substance: SILDENAFIL CITRATE
     Indication: PERSISTENT FOETAL CIRCULATION
     Dosage: UNK
     Route: 048
     Dates: start: 201601, end: 201601
  2. REVATIO [Suspect]
     Active Substance: SILDENAFIL CITRATE
     Indication: PERSISTENT FOETAL CIRCULATION
     Dosage: UNK
     Route: 042
     Dates: start: 201601
  3. DOPAMINE [Concomitant]
     Active Substance: DOPAMINE\DOPAMINE HYDROCHLORIDE
     Dosage: UNK

REACTIONS (3)
  - Drug ineffective for unapproved indication [Unknown]
  - Drug administered to patient of inappropriate age [Unknown]
  - Death [Fatal]

NARRATIVE: CASE EVENT DATE: 201601
